FAERS Safety Report 25508228 (Version 1)
Quarter: 2025Q3

REPORT INFORMATION
  Report Type: Spontaneous
  Country: EU (occurrence: EU)
  Receive Date: 20250703
  Receipt Date: 20250703
  Transmission Date: 20251020
  Serious: Yes (Other)
  Sender: AUROBINDO
  Company Number: EU-ADIENNEP-2024AD000857

PATIENT
  Sex: Male

DRUGS (6)
  1. MYCOPHENOLIC ACID [Suspect]
     Active Substance: MYCOPHENOLIC ACID
     Indication: Prophylaxis against graft versus host disease
     Route: 065
  2. BUSULFAN [Suspect]
     Active Substance: BUSULFAN
     Indication: Allogenic stem cell transplantation
     Dosage: 3.2 MILLIGRAM/KILOGRAM, ONCE A DAY(3.2 MG/KG AS A SINGLE DAILY DOSE ON DAYS -5 AND -4)
     Route: 065
     Dates: start: 202110, end: 202110
  3. CYCLOPHOSPHAMIDE [Suspect]
     Active Substance: CYCLOPHOSPHAMIDE
     Indication: Prophylaxis against graft versus host disease
     Route: 065
  4. CYCLOSPORINE [Suspect]
     Active Substance: CYCLOSPORINE
     Indication: Prophylaxis against graft versus host disease
     Route: 065
  5. FLUDARABINE [Suspect]
     Active Substance: FLUDARABINE PHOSPHATE
     Indication: Allogenic stem cell transplantation
     Dosage: 50 MILLIGRAM/SQ. METER, ONCE A DAY(50 MG/M2/DAY ON DAYS -5 TO -3)
     Route: 065
     Dates: start: 202110, end: 202110
  6. THIOTEPA [Suspect]
     Active Substance: THIOTEPA
     Indication: Allogenic stem cell transplantation
     Dosage: 5 MILLIGRAM/KILOGRAM, ONCE A DAY(5 MG/KG/DAY ON DAYS -7 AND -6)
     Route: 065
     Dates: start: 202110, end: 202110

REACTIONS (3)
  - Autoimmune haemolytic anaemia [Unknown]
  - COVID-19 [Unknown]
  - Cytomegalovirus infection reactivation [Unknown]

NARRATIVE: CASE EVENT DATE: 20211201
